FAERS Safety Report 21683639 (Version 7)
Quarter: 2025Q2

REPORT INFORMATION
  Report Type: Report from Study
  Country: US (occurrence: US)
  Receive Date: 20221205
  Receipt Date: 20250519
  Transmission Date: 20250716
  Serious: Yes (Hospitalization, Other)
  Sender: TAKEDA
  Company Number: US-TAKEDA-2022TUS014216

PATIENT
  Sex: Female

DRUGS (2)
  1. HUMAN IMMUNOGLOBULIN G [Suspect]
     Active Substance: HUMAN IMMUNOGLOBULIN G
     Indication: Immunodeficiency common variable
  2. HUMAN IMMUNOGLOBULIN G [Suspect]
     Active Substance: HUMAN IMMUNOGLOBULIN G
     Indication: Primary immunodeficiency syndrome

REACTIONS (25)
  - Urinary tract infection [Unknown]
  - Herpes zoster [Unknown]
  - Pneumonia [Unknown]
  - Diabetes mellitus [Unknown]
  - Upper respiratory tract infection [Unknown]
  - Epistaxis [Unknown]
  - Dyspnoea [Unknown]
  - Rhinitis [Not Recovered/Not Resolved]
  - Libido increased [Unknown]
  - Oxygen saturation decreased [Unknown]
  - Urticaria [Unknown]
  - Infection [Recovering/Resolving]
  - Norovirus infection [Unknown]
  - Neuralgia [Unknown]
  - Red blood cell sedimentation rate increased [Unknown]
  - Tooth infection [Unknown]
  - Loose tooth [Unknown]
  - Alopecia [Unknown]
  - Lung disorder [Unknown]
  - Facial pain [Unknown]
  - Nervous system disorder [Unknown]
  - Sinusitis [Unknown]
  - Rash [Unknown]
  - Cough [Unknown]
  - Arthralgia [Unknown]
